FAERS Safety Report 17417461 (Version 2)
Quarter: 2020Q1

REPORT INFORMATION
  Report Type: Spontaneous
  Country: GB (occurrence: GB)
  Receive Date: 20200213
  Receipt Date: 20200303
  Transmission Date: 20200409
  Serious: Yes (Death, Other)
  Sender: FDA-Public Use
  Company Number: GB-AMGEN-GBRSP2020025156

PATIENT
  Age: 66 Year
  Sex: Female
  Weight: 46.1 kg

DRUGS (1)
  1. IVABRADINE [Suspect]
     Active Substance: IVABRADINE
     Indication: PRODUCT USED FOR UNKNOWN INDICATION
     Dosage: 15 MILLIGRAM, QD
     Route: 048

REACTIONS (3)
  - Peripheral swelling [Unknown]
  - Skin discolouration [Unknown]
  - Death [Fatal]

NARRATIVE: CASE EVENT DATE: 2020
